FAERS Safety Report 8067740-7 (Version None)
Quarter: 2012Q1

REPORT INFORMATION
  Report Type: 
  Country: None (occurrence: None)
  Receive Date: 20120124
  Receipt Date: 20120112
  Transmission Date: 20120608
  Serious: Yes (Hospitalization)
  Sender: FDA-Public Use
  Company Number: NL-MEDIMMUNE-MEDI-0014296

PATIENT
  Sex: Male
  Weight: 4.035 kg

DRUGS (5)
  1. LACTULOSE [Concomitant]
  2. FUROSEMIDE SODIUM [Concomitant]
     Dates: start: 20110902
  3. SPIRONOLACTONE [Concomitant]
     Dates: start: 20110902
  4. SYNAGIS [Suspect]
     Indication: PREMATURE BABY
     Route: 030
     Dates: start: 20111027, end: 20111027
  5. SYNAGIS [Suspect]
     Route: 030
     Dates: start: 20111124, end: 20111124

REACTIONS (10)
  - FLUID RETENTION [None]
  - INFANTILE SPITTING UP [None]
  - GROWTH RETARDATION [None]
  - PNEUMONIA [None]
  - VOMITING [None]
  - WHEEZING [None]
  - PYREXIA [None]
  - RHINORRHOEA [None]
  - UNEVALUABLE EVENT [None]
  - PLEURAL EFFUSION [None]
